FAERS Safety Report 7416294-4 (Version None)
Quarter: 2011Q2

REPORT INFORMATION
  Report Type: 
  Country: None (occurrence: None)
  Receive Date: 20110414
  Receipt Date: 20110411
  Transmission Date: 20111010
  Serious: Yes (Death, Other)
  Sender: FDA-Public Use
  Company Number: ES-ELI_LILLY_AND_COMPANY-ES201104002800

PATIENT
  Sex: Male

DRUGS (2)
  1. EFFIENT [Suspect]
  2. ASPIRIN [Concomitant]

REACTIONS (3)
  - DEATH [None]
  - CEREBRAL HAEMORRHAGE [None]
  - HYPERTENSION [None]
